FAERS Safety Report 4905582-9 (Version None)
Quarter: 2006Q1

REPORT INFORMATION
  Report Type: 
  Country: None (occurrence: None)
  Receive Date: 20060203
  Receipt Date: 20060123
  Transmission Date: 20060701
  Serious: Yes (Hospitalization)
  Sender: FDA-Public Use
  Company Number: 2006010037

PATIENT
  Age: 37 Year
  Sex: Female

DRUGS (1)
  1. OPTIVAR [Suspect]
     Indication: ILL-DEFINED DISORDER
     Dosage: 2 DROPS EACH EYE, ONCE
     Dates: start: 20060120

REACTIONS (1)
  - HYPOAESTHESIA [None]
